FAERS Safety Report 12003696 (Version 1)
Quarter: 2016Q1

REPORT INFORMATION
  Report Type: Spontaneous
  Country: US (occurrence: US)
  Receive Date: 20160204
  Receipt Date: 20160204
  Transmission Date: 20160526
  Serious: Yes (Other)
  Sender: FDA-Public Use
  Company Number: US-BIOMARINAP-US-2016-108793

PATIENT
  Age: 17 Year
  Sex: Male
  Weight: 34.1 kg

DRUGS (2)
  1. ALDURAZYME [Suspect]
     Active Substance: LARONIDASE
     Indication: MUCOPOLYSACCHARIDOSIS
     Dosage: 17.4 MG, QW
     Route: 041
  2. LMX [Concomitant]
     Active Substance: LIDOCAINE
     Indication: PREMEDICATION
     Dosage: UNK
     Dates: start: 20150826

REACTIONS (1)
  - Pneumonia [Unknown]
